FAERS Safety Report 23981012 (Version 1)
Quarter: 2024Q2

REPORT INFORMATION
  Report Type: Spontaneous
  Country: US (occurrence: None)
  Receive Date: 20240614
  Receipt Date: 20240614
  Transmission Date: 20240716
  Serious: Yes (Death)
  Sender: FDA-Public Use
  Company Number: None

PATIENT
  Age: 75 Year
  Sex: Male

DRUGS (3)
  1. CABENUVA [Suspect]
     Active Substance: CABOTEGRAVIR\RILPIVIRINE
     Indication: HIV infection
     Dosage: 6 ML MILLILITRE (S)  EVERY 8 WEEKS INTRAMUSCULAR
     Route: 030
     Dates: start: 20240501, end: 20240608
  2. WELLBUTRIN 75MG [Concomitant]
     Dates: end: 20240608
  3. ATORVASTATIN [Concomitant]
     Active Substance: ATORVASTATIN
     Dates: end: 20240608

REACTIONS (3)
  - Cardiac failure congestive [None]
  - Cardiomyopathy [None]
  - Atrial fibrillation [None]

NARRATIVE: CASE EVENT DATE: 20240608
